FAERS Safety Report 5480340-8 (Version None)
Quarter: 2007Q3

REPORT INFORMATION
  Report Type: 
  Country: None (occurrence: None)
  Receive Date: 20070914
  Receipt Date: 20061009
  Transmission Date: 20080115
  Serious: Yes (Hospitalization)
  Sender: FDA-Public Use
  Company Number: 06P-163-0346548-00

PATIENT
  Age: 79 Year
  Sex: Female

DRUGS (3)
  1. SYNTHROID [Suspect]
     Indication: HYPOTHYROIDISM
     Dosage: PER ORAL;  0.125 MCG, PER ORAL;  0.075 MCG, ALTERNATE WITH 0.125 MCG, PER ORAL
     Route: 048
     Dates: start: 19810101, end: 20060202
  2. SYNTHROID [Suspect]
     Indication: HYPOTHYROIDISM
     Dosage: PER ORAL;  0.125 MCG, PER ORAL;  0.075 MCG, ALTERNATE WITH 0.125 MCG, PER ORAL
     Route: 048
     Dates: start: 20060202, end: 20061001
  3. SYNTHROID [Suspect]
     Indication: HYPOTHYROIDISM
     Dosage: PER ORAL;  0.125 MCG, PER ORAL;  0.075 MCG, ALTERNATE WITH 0.125 MCG, PER ORAL
     Route: 048
     Dates: start: 20061001

REACTIONS (3)
  - BLOOD THYROID STIMULATING HORMONE DECREASED [None]
  - DYSPEPSIA [None]
  - MYOCARDIAL INFARCTION [None]
